FAERS Safety Report 14531252 (Version 1)
Quarter: 2018Q1

REPORT INFORMATION
  Report Type: Spontaneous
  Country: US (occurrence: US)
  Receive Date: 20180213
  Receipt Date: 20180213
  Transmission Date: 20180509
  Serious: No
  Sender: FDA-Public Use
  Company Number: None

PATIENT
  Age: 40 Year
  Sex: Female
  Weight: 47.25 kg

DRUGS (5)
  1. CIPRO [Suspect]
     Active Substance: CIPROFLOXACIN HYDROCHLORIDE
     Indication: INFECTION PROPHYLAXIS
     Route: 048
     Dates: start: 20171201, end: 20180101
  2. MAGNESIUM [Concomitant]
     Active Substance: MAGNESIUM
  3. BIOTIN [Concomitant]
     Active Substance: BIOTIN
  4. PROBIOTICS [Concomitant]
     Active Substance: PROBIOTICS NOS
  5. PREBIOTIC [Concomitant]

REACTIONS (4)
  - Peripheral swelling [None]
  - Joint swelling [None]
  - Erythema [None]
  - Limb discomfort [None]

NARRATIVE: CASE EVENT DATE: 20180101
